FAERS Safety Report 7502813-6 (Version None)
Quarter: 2011Q2

REPORT INFORMATION
  Report Type: 
  Country: None (occurrence: None)
  Receive Date: 20110525
  Receipt Date: 20110517
  Transmission Date: 20111010
  Serious: Yes (Death, Hospitalization, Other)
  Sender: FDA-Public Use
  Company Number: US-AMGEN-QUU378950

PATIENT
  Age: 60 Year
  Sex: Male

DRUGS (6)
  1. NEUPOGEN [Suspect]
     Indication: COLON CANCER
     Dosage: 480 A?G, QD
     Route: 058
     Dates: start: 20061201
  2. NEULASTA [Suspect]
     Indication: CHEMOTHERAPY
     Route: 058
  3. LEUCOVORIN CALCIUM [Concomitant]
  4. CRESTOR [Concomitant]
  5. 5-FU                               /00098801/ [Concomitant]
     Dosage: UNK
  6. LOMOTIL [Concomitant]

REACTIONS (5)
  - HAEMORRHAGE [None]
  - HEPATIC HAEMORRHAGE [None]
  - WHITE BLOOD CELL COUNT INCREASED [None]
  - SPLENIC RUPTURE [None]
  - ACUTE RESPIRATORY DISTRESS SYNDROME [None]
